FAERS Safety Report 5330006-X (Version None)
Quarter: 2007Q2

REPORT INFORMATION
  Report Type: 
  Country: None (occurrence: None)
  Receive Date: 20070521
  Receipt Date: 20070516
  Transmission Date: 20071010
  Serious: Yes (Life-Threatening, Hospitalization)
  Sender: FDA-Public Use
  Company Number: B0470349A

PATIENT
  Age: 31 Year
  Sex: Female
  Weight: 50 kg

DRUGS (9)
  1. FLOLAN [Suspect]
     Indication: PULMONARY HYPERTENSION
     Route: 042
     Dates: start: 20031119
  2. LEVOFLOXACIN [Suspect]
     Route: 048
     Dates: start: 20040308, end: 20040318
  3. TRACLEER [Suspect]
     Route: 048
     Dates: start: 20060529
  4. FUROSEMIDE [Concomitant]
     Route: 048
  5. SPIRONOLACTONE [Concomitant]
     Route: 048
  6. FERROMIA [Concomitant]
     Route: 048
  7. SLOW-K [Concomitant]
     Route: 048
  8. DOBUTAMINE HCL [Concomitant]
     Route: 042
     Dates: start: 20031113, end: 20031218
  9. GOODMIN [Concomitant]
     Route: 048
     Dates: start: 20041130

REACTIONS (10)
  - ALANINE AMINOTRANSFERASE INCREASED [None]
  - ASPARTATE AMINOTRANSFERASE INCREASED [None]
  - BRAIN NATRIURETIC PEPTIDE INCREASED [None]
  - C-REACTIVE PROTEIN INCREASED [None]
  - CARDIAC FAILURE [None]
  - CATHETER RELATED INFECTION [None]
  - COLLAGEN DISORDER [None]
  - COUGH [None]
  - INFECTION [None]
  - PYREXIA [None]
